FAERS Safety Report 8410972-6 (Version None)
Quarter: 2012Q2

REPORT INFORMATION
  Report Type: 
  Country: None (occurrence: None)
  Receive Date: 20120605
  Receipt Date: 20120521
  Transmission Date: 20120825
  Serious: No
  Sender: FDA-Public Use
  Company Number: US-ASTRAZENECA-2010SE45711

PATIENT
  Age: 39 Year
  Sex: Female

DRUGS (1)
  1. TOPROL-XL [Suspect]
     Indication: HYPERTENSION
     Route: 048

REACTIONS (4)
  - PALPITATIONS [None]
  - NASOPHARYNGITIS [None]
  - SNEEZING [None]
  - THERAPEUTIC RESPONSE DECREASED [None]
